FAERS Safety Report 8942362 (Version 1)
Quarter: 2012Q4

REPORT INFORMATION
  Report Type: Spontaneous
  Country: US (occurrence: None)
  Receive Date: 20121121
  Receipt Date: 20121121
  Transmission Date: 20130627
  Serious: Yes (Other)
  Sender: FDA-Public Use
  Company Number: 2012P1060980

PATIENT
  Age: 50 Year
  Sex: Female
  Weight: 66.68 kg

DRUGS (6)
  1. PREDNISONE TABLETS USP 5MG (NO PREF. NAME) [Suspect]
     Indication: DRUG USE FOR UNKNOWN INDICATION
     Route: 048
     Dates: start: 2012, end: 20120924
  2. LORAZEPAM [Suspect]
     Indication: ANXIETY
     Dosage: PRN
     Route: 048
  3. ZANTAC [Suspect]
     Indication: STOMACH UPSET
  4. ZANTAC [Suspect]
     Indication: ACID REFLUX (ESOPHAGEAL)
  5. TOPAMAX [Suspect]
     Indication: MOOD SWINGS
     Dosage: 0.5 tablet
     Dates: start: 20120820, end: 20120827
  6. LEVOTHYROXINE SODIUM [Concomitant]

REACTIONS (23)
  - Hypothyroidism [None]
  - Drug dispensing error [None]
  - Product commingling [None]
  - Wrong drug administered [None]
  - Blood pressure increased [None]
  - Heart rate increased [None]
  - Vomiting [None]
  - Gastrooesophageal reflux disease [None]
  - Drug effect decreased [None]
  - Constipation [None]
  - Hiccups [None]
  - Oropharyngeal pain [None]
  - Pharyngeal inflammation [None]
  - Weight fluctuation [None]
  - Swelling face [None]
  - Mood swings [None]
  - Anger [None]
  - Anger [None]
  - Crying [None]
  - Blood cortisol increased [None]
  - Irritable bowel syndrome [None]
  - Depression [None]
  - Tooth infection [None]
